FAERS Safety Report 8472608-8 (Version None)
Quarter: 2012Q2

REPORT INFORMATION
  Report Type: 
  Country: None (occurrence: None)
  Receive Date: 20120627
  Receipt Date: 20120313
  Transmission Date: 20120825
  Serious: No
  Sender: FDA-Public Use
  Company Number: US-AMGEN-USASP2012017164

PATIENT
  Age: 48 Year
  Sex: Female
  Weight: 79.365 kg

DRUGS (1)
  1. PROCRIT [Suspect]
     Indication: ANAEMIA
     Dosage: UNK
     Dates: start: 20120101, end: 20120101

REACTIONS (4)
  - DRUG INEFFECTIVE [None]
  - URTICARIA [None]
  - RASH [None]
  - ACCIDENTAL EXPOSURE [None]
